FAERS Safety Report 15058999 (Version 2)
Quarter: 2018Q4

REPORT INFORMATION
  Report Type: Spontaneous
  Country: DK (occurrence: DK)
  Receive Date: 20180625
  Receipt Date: 20181128
  Transmission Date: 20190204
  Serious: Yes (Hospitalization)
  Sender: FDA-Public Use
  Company Number: DK-SA-2018SA168347

PATIENT
  Age: 41 Year
  Sex: Female

DRUGS (2)
  1. LEMTRADA [Suspect]
     Active Substance: ALEMTUZUMAB
     Indication: MULTIPLE SCLEROSIS
     Dosage: 12 ML, QD
     Route: 042
     Dates: start: 20161125, end: 20161129
  2. LAMOTRIGINE. [Concomitant]
     Active Substance: LAMOTRIGINE
     Indication: EPILEPSY
     Dosage: 100 MG
     Route: 048
     Dates: start: 20141026

REACTIONS (9)
  - Dysgeusia [Unknown]
  - Dysaesthesia [Unknown]
  - Hypoaesthesia oral [Unknown]
  - Cardiac dysfunction [Recovered/Resolved]
  - Intracardiac thrombus [Recovered/Resolved]
  - Vasospasm [Recovered/Resolved]
  - Coronary artery stenosis [Recovered/Resolved]
  - Parosmia [Unknown]
  - Chest pain [Recovered/Resolved]

NARRATIVE: CASE EVENT DATE: 201611
